FAERS Safety Report 9827001 (Version 1)
Quarter: 2014Q1

REPORT INFORMATION
  Report Type: Report from Study
  Country: LB (occurrence: LB)
  Receive Date: 20140117
  Receipt Date: 20140117
  Transmission Date: 20141002
  Serious: Yes (Hospitalization)
  Sender: FDA-Public Use
  Company Number: LB-SA-2014SA005015

PATIENT
  Age: 81 Year
  Sex: Female

DRUGS (6)
  1. LANTUS SOLOSTAR [Suspect]
     Indication: PRODUCT USED FOR UNKNOWN INDICATION
     Dosage: DOSE:10 UNIT(S)
     Route: 058
     Dates: start: 20130628
  2. SOLOSTAR [Concomitant]
     Indication: DEVICE THERAPY
     Dates: start: 20130628
  3. LASIX [Concomitant]
  4. CONCOR [Concomitant]
  5. ISOSORBIDE MONONITRATE [Concomitant]
  6. ALDACTONE [Concomitant]

REACTIONS (1)
  - Colectomy [Unknown]
